FAERS Safety Report 13210600 (Version 1)
Quarter: 2017Q1

REPORT INFORMATION
  Report Type: Spontaneous
  Country: US (occurrence: US)
  Receive Date: 20170209
  Receipt Date: 20170209
  Transmission Date: 20170428
  Serious: Yes (Other)
  Sender: FDA-Public Use
  Company Number: None

PATIENT
  Age: 24 Year
  Sex: Female
  Weight: 130 kg

DRUGS (8)
  1. DICLOFENAC SODIUM ER [Suspect]
     Active Substance: DICLOFENAC SODIUM
     Indication: JOINT STIFFNESS
     Dosage: AT BEDTIME 1 TABLET(S)
     Route: 048
  2. PROBIOTIC [Concomitant]
     Active Substance: PROBIOTICS NOS
  3. VITAMIN C [Concomitant]
     Active Substance: ASCORBIC ACID
  4. BROMOCRIPTINE [Concomitant]
     Active Substance: BROMOCRIPTINE
  5. VITAMIN D [Concomitant]
     Active Substance: CHOLECALCIFEROL
  6. ZYRTEC [Concomitant]
     Active Substance: CETIRIZINE HYDROCHLORIDE
  7. DICLOFENAC SODIUM ER [Suspect]
     Active Substance: DICLOFENAC SODIUM
     Indication: ARTHRALGIA
     Dosage: AT BEDTIME 1 TABLET(S)
     Route: 048
  8. VITAMIN B12 [Concomitant]
     Active Substance: CYANOCOBALAMIN

REACTIONS (1)
  - Obsessive-compulsive disorder [None]
